FAERS Safety Report 6076532-X (Version None)
Quarter: 2009Q1

REPORT INFORMATION
  Report Type: 
  Country: None (occurrence: None)
  Receive Date: 20090213
  Receipt Date: 20090210
  Transmission Date: 20090719
  Serious: Yes (Death, Life-Threatening)
  Sender: FDA-Public Use
  Company Number: DE-BAYER-200912489GPV

PATIENT
  Age: 48 Year
  Sex: Female
  Weight: 70 kg

DRUGS (27)
  1. AVELOX [Suspect]
     Indication: PNEUMONIA
     Dosage: TOTAL DAILY DOSE: 400 MG  UNIT DOSE: 400 MG
     Route: 042
     Dates: start: 20090122, end: 20090124
  2. PIPERACILLIN [Concomitant]
     Indication: PNEUMONIA ASPIRATION
     Dosage: TOTAL DAILY DOSE: 8 G
     Route: 042
     Dates: start: 20090113, end: 20090114
  3. PIPERACILLIN [Concomitant]
     Dosage: TOTAL DAILY DOSE: 12 G
     Route: 042
     Dates: start: 20090115, end: 20090115
  4. SULBACTAM [Concomitant]
     Indication: PNEUMONIA ASPIRATION
     Dosage: TOTAL DAILY DOSE: 2 G
     Route: 042
     Dates: start: 20090113, end: 20090114
  5. SULBACTAM [Concomitant]
     Dosage: TOTAL DAILY DOSE: 3 G
     Route: 042
     Dates: start: 20090115, end: 20090115
  6. MEROPENEM [Concomitant]
     Indication: DRUG USE FOR UNKNOWN INDICATION
     Dosage: TOTAL DAILY DOSE: 1 G
     Route: 042
     Dates: start: 20090115, end: 20090115
  7. MEROPENEM [Concomitant]
     Dosage: TOTAL DAILY DOSE: 3 G
     Route: 042
     Dates: start: 20090116, end: 20090116
  8. MEROPENEM [Concomitant]
     Dosage: TOTAL DAILY DOSE: 2 G
     Route: 042
     Dates: start: 20090117, end: 20090117
  9. MEROPENEM [Concomitant]
     Dosage: TOTAL DAILY DOSE: 1.5 G
     Route: 042
     Dates: start: 20090119, end: 20090122
  10. VANCOMYCIN HCL [Concomitant]
     Indication: DRUG USE FOR UNKNOWN INDICATION
     Dosage: TOTAL DAILY DOSE: 1 G
     Route: 042
     Dates: start: 20090115, end: 20090117
  11. VANCOMYCIN HCL [Concomitant]
     Dosage: TOTAL DAILY DOSE: 0.5 G
     Route: 042
     Dates: start: 20090119, end: 20090122
  12. ROXITHROMYCIN [Concomitant]
     Indication: DRUG USE FOR UNKNOWN INDICATION
     Route: 042
     Dates: start: 20090118, end: 20090118
  13. ERYTHROMYCIN [Concomitant]
     Indication: DRUG USE FOR UNKNOWN INDICATION
     Dosage: TOTAL DAILY DOSE: 1 G
     Route: 042
     Dates: start: 20090118, end: 20090118
  14. ERYTHROMYCIN [Concomitant]
     Dosage: UNIT DOSE: 1 G
     Route: 042
     Dates: start: 20090119, end: 20090122
  15. LINEZOLID [Concomitant]
     Indication: DRUG USE FOR UNKNOWN INDICATION
     Dosage: TOTAL DAILY DOSE: 1200 MG
     Route: 042
     Dates: start: 20090122, end: 20090125
  16. TOBRAMYCIN [Concomitant]
     Indication: DRUG USE FOR UNKNOWN INDICATION
     Dosage: TOTAL DAILY DOSE: 160 MG
     Route: 042
     Dates: start: 20090122, end: 20090124
  17. GENTAMYCIN SULFATE [Concomitant]
     Indication: KLEBSIELLA INFECTION
     Dosage: TOTAL DAILY DOSE: 140 MG
     Route: 042
     Dates: start: 20090125, end: 20090125
  18. GENTAMYCIN SULFATE [Concomitant]
     Dosage: TOTAL DAILY DOSE: 120 MG
     Route: 042
     Dates: start: 20090126, end: 20090126
  19. METALYSE [Concomitant]
     Indication: ACUTE MYOCARDIAL INFARCTION
     Route: 065
     Dates: start: 20090112, end: 20090112
  20. CATECHOLAMINE [Concomitant]
     Indication: RESPIRATORY ARREST
     Route: 065
     Dates: start: 20090112, end: 20090112
  21. CLOPIDOGREL [Concomitant]
     Indication: DRUG USE FOR UNKNOWN INDICATION
     Dosage: AS USED: 75 MG  UNIT DOSE: 75 MG
     Route: 065
     Dates: start: 20090112, end: 20090126
  22. ASPIRIN [Concomitant]
     Indication: DRUG USE FOR UNKNOWN INDICATION
     Dosage: UNIT DOSE: 100 MG
     Route: 065
     Dates: start: 20090112, end: 20090126
  23. PERFALGAN [Concomitant]
     Indication: DRUG USE FOR UNKNOWN INDICATION
     Dosage: TOTAL DAILY DOSE: 1 G
     Route: 042
     Dates: start: 20090119, end: 20090121
  24. PERFALGAN [Concomitant]
     Dosage: TOTAL DAILY DOSE: 2 G
     Route: 042
     Dates: start: 20090115, end: 20090116
  25. PREDNISOLONE [Concomitant]
     Indication: DRUG USE FOR UNKNOWN INDICATION
     Route: 042
     Dates: start: 20090117, end: 20090117
  26. INSPRA [Concomitant]
     Indication: DRUG USE FOR UNKNOWN INDICATION
     Dosage: TOTAL DAILY DOSE: 25 MG
     Route: 065
     Dates: start: 20090117
  27. IVABRADIN [Concomitant]
     Indication: DRUG USE FOR UNKNOWN INDICATION
     Dosage: TOTAL DAILY DOSE: 10 MG
     Route: 065

REACTIONS (3)
  - ACUTE HEPATIC FAILURE [None]
  - MULTI-ORGAN FAILURE [None]
  - SHOCK [None]
